FAERS Safety Report 24048319 (Version 1)
Quarter: 2024Q3

REPORT INFORMATION
  Report Type: Spontaneous
  Country: US (occurrence: US)
  Receive Date: 20240704
  Receipt Date: 20240704
  Transmission Date: 20241016
  Serious: Yes (Other)
  Sender: BRISTOL MYERS SQUIBB
  Company Number: US-BRISTOL-MYERS SQUIBB COMPANY-2024-105214

PATIENT
  Age: 75 Year
  Sex: Female

DRUGS (1)
  1. ABRAXANE [Suspect]
     Active Substance: PACLITAXEL
     Indication: Neoplasm malignant
     Dosage: DOSE : 160 MG; FREQUENCY: DAYS 1, 8, AND 15 EVERY 28 DAYS
     Route: 042

REACTIONS (1)
  - Malignant neoplasm progression [Unknown]
